FAERS Safety Report 25763577 (Version 1)
Quarter: 2025Q3

REPORT INFORMATION
  Report Type: Spontaneous
  Country: US (occurrence: US)
  Receive Date: 20250905
  Receipt Date: 20250905
  Transmission Date: 20251021
  Serious: No
  Sender: DOMPE FARMACEUTICI
  Company Number: US-FARMAPROD-202410-3721

PATIENT
  Sex: Female

DRUGS (18)
  1. OXERVATE [Suspect]
     Active Substance: CENEGERMIN-BKBJ
     Indication: Neurotrophic keratopathy
     Route: 047
     Dates: start: 20240209
  2. UNSPECIFIED INGREDIENT [Concomitant]
     Active Substance: UNSPECIFIED INGREDIENT
  3. HUMALOG [Concomitant]
     Active Substance: INSULIN LISPRO
  4. PRASUGREL HYDROCHLORIDE [Concomitant]
     Active Substance: PRASUGREL HYDROCHLORIDE
  5. VITAMIN D3 [Concomitant]
     Active Substance: CHOLECALCIFEROL
  6. TORSEMIDE [Concomitant]
     Active Substance: TORSEMIDE
  7. MAGNESIUM [Concomitant]
     Active Substance: MAGNESIUM
  8. VITAMINS [Concomitant]
     Active Substance: VITAMINS
  9. TRESIBA [Concomitant]
     Active Substance: INSULIN DEGLUDEC
  10. RAMIPRIL [Concomitant]
     Active Substance: RAMIPRIL
  11. ASPIRIN [Concomitant]
     Active Substance: ASPIRIN
  12. OMEPRAZOLE [Concomitant]
     Active Substance: OMEPRAZOLE
  13. OXYCONTIN [Concomitant]
     Active Substance: OXYCODONE HYDROCHLORIDE
  14. OXYCODONE HYDROCHLORIDE [Concomitant]
     Active Substance: OXYCODONE HYDROCHLORIDE
  15. REPATHA [Concomitant]
     Active Substance: EVOLOCUMAB
  16. BROMFENAC SODIUM [Concomitant]
     Active Substance: BROMFENAC SODIUM
  17. LOTEPREDNOL ETABONATE [Concomitant]
     Active Substance: LOTEPREDNOL ETABONATE
  18. OFLOXACIN [Concomitant]
     Active Substance: OFLOXACIN

REACTIONS (3)
  - Vitreous floaters [Not Recovered/Not Resolved]
  - Photophobia [Not Recovered/Not Resolved]
  - Nervousness [Not Recovered/Not Resolved]
